FAERS Safety Report 6251621-5 (Version None)
Quarter: 2009Q2

REPORT INFORMATION
  Report Type: 
  Country: None (occurrence: None)
  Receive Date: 20090626
  Receipt Date: 20090626
  Transmission Date: 20091009
  Serious: No
  Sender: FDA-Public Use
  Company Number: None

PATIENT
  Age: 52 Year
  Sex: Female
  Weight: 73.4827 kg

DRUGS (1)
  1. ZICAM GEL SWABS ZICAM LLC PHOENIX, AZ [Suspect]
     Indication: NASOPHARYNGITIS
     Dosage: ONE SWAB EVERY 4 HOURS NASAL; 3-5 DAYS
     Route: 045
     Dates: start: 20041210, end: 20041213

REACTIONS (2)
  - AGEUSIA [None]
  - ANOSMIA [None]
